FAERS Safety Report 8023749-0 (Version None)
Quarter: 2012Q1

REPORT INFORMATION
  Report Type: 
  Country: None (occurrence: None)
  Receive Date: 20120103
  Receipt Date: 20120103
  Transmission Date: 20120608
  Serious: Yes (Hospitalization)
  Sender: FDA-Public Use
  Company Number: None

PATIENT
  Age: 59 Year
  Sex: Male
  Weight: 76.4 kg

DRUGS (1)
  1. CEPHALEXIN [Suspect]
     Indication: EAR INFECTION
     Dosage: 500 MG QID PO
     Route: 048
     Dates: start: 20111003, end: 20111102

REACTIONS (2)
  - RENAL FAILURE ACUTE [None]
  - METASTASES TO LUNG [None]
